FAERS Safety Report 6382335-9 (Version None)
Quarter: 2009Q3

REPORT INFORMATION
  Report Type: 
  Country: None (occurrence: None)
  Receive Date: 20090930
  Receipt Date: 20090925
  Transmission Date: 20100115
  Serious: Yes (Hospitalization, Other)
  Sender: FDA-Public Use
  Company Number: US-PFIZER INC-2005048767

PATIENT
  Sex: Female
  Weight: 68 kg

DRUGS (10)
  1. PROVERA [Suspect]
     Indication: HORMONE REPLACEMENT THERAPY
     Dosage: 10 MG, UNK
     Route: 048
     Dates: start: 19950801, end: 20010601
  2. MEDROXYPROGESTERONE AND MEDROXYPROGESTERONE ACETATE [Suspect]
     Indication: HORMONE REPLACEMENT THERAPY
     Dosage: 5 MG, UNK
     Route: 048
     Dates: start: 20000828, end: 20001218
  3. PREMPHASE 14/14 [Suspect]
     Indication: HORMONE REPLACEMENT THERAPY
     Dosage: 0.625/5MG
     Dates: start: 19970701, end: 20010601
  4. PREMPRO [Suspect]
     Indication: HORMONE REPLACEMENT THERAPY
     Dosage: 0.625/5MG
     Dates: start: 20010801, end: 20021201
  5. PREMPRO [Suspect]
     Dosage: 0.625/2.5MG
     Dates: start: 20010604, end: 20020206
  6. PROMETRIUM [Suspect]
     Indication: HORMONE REPLACEMENT THERAPY
     Dosage: 100 MG, UNK
     Dates: start: 20021230, end: 20030519
  7. EVISTA [Suspect]
     Indication: HORMONE REPLACEMENT THERAPY
     Dosage: 60 MG, UNK
     Dates: start: 20020710
  8. PREMARIN [Suspect]
     Indication: HORMONE REPLACEMENT THERAPY
     Dosage: 1.25 MG, UNK
     Dates: start: 20030501, end: 20030601
  9. CELEBREX [Concomitant]
     Indication: PAIN IN EXTREMITY
     Dosage: UNK
     Dates: start: 20000101, end: 20040101
  10. ACIPHEX [Concomitant]
     Indication: GASTROOESOPHAGEAL REFLUX DISEASE
     Dosage: UNK
     Dates: start: 20020101, end: 20040101

REACTIONS (1)
  - BREAST CANCER FEMALE [None]
